FAERS Safety Report 20180036 (Version 1)
Quarter: 2021Q4

REPORT INFORMATION
  Report Type: Spontaneous
  Country: US (occurrence: None)
  Receive Date: 20211213
  Receipt Date: 20211213
  Transmission Date: 20220304
  Serious: No
  Sender: FDA-Public Use
  Company Number: None

PATIENT
  Age: 57 Year
  Sex: Female
  Weight: 107.1 kg

DRUGS (1)
  1. BAMLANIVIMAB\ETESEVIMAB [Suspect]
     Active Substance: BAMLANIVIMAB\ETESEVIMAB
     Indication: COVID-19
     Dates: start: 20211209

REACTIONS (6)
  - Infusion related reaction [None]
  - Feeling hot [None]
  - Malaise [None]
  - Hypoaesthesia [None]
  - Hypoaesthesia [None]
  - Muscle spasms [None]

NARRATIVE: CASE EVENT DATE: 20211209
